FAERS Safety Report 8416415-0 (Version None)
Quarter: 2012Q2

REPORT INFORMATION
  Report Type: 
  Country: None (occurrence: None)
  Receive Date: 20120606
  Receipt Date: 20120524
  Transmission Date: 20120825
  Serious: Yes (Hospitalization, Other)
  Sender: FDA-Public Use
  Company Number: US-ELI_LILLY_AND_COMPANY-US201108003676

PATIENT
  Sex: Female

DRUGS (2)
  1. FORTEO [Suspect]
     Indication: OSTEOPOROSIS
     Dosage: 20 UG, QD
     Route: 065
  2. FORTEO [Suspect]
     Dosage: 20 UG, QD

REACTIONS (11)
  - HIP FRACTURE [None]
  - BODY HEIGHT DECREASED [None]
  - SURGERY [None]
  - MYOCARDIAL INFARCTION [None]
  - LIMB INJURY [None]
  - MOBILITY DECREASED [None]
  - FALL [None]
  - WEIGHT DECREASED [None]
  - PAIN [None]
  - INJECTION SITE INJURY [None]
  - RHEUMATOID ARTHRITIS [None]
